FAERS Safety Report 14406542 (Version 1)
Quarter: 2018Q1

REPORT INFORMATION
  Report Type: Spontaneous
  Country: ES (occurrence: ES)
  Receive Date: 20180118
  Receipt Date: 20180118
  Transmission Date: 20180509
  Serious: Yes (Life-Threatening, Hospitalization, Other)
  Sender: FDA-Public Use
  Company Number: ES-ELI_LILLY_AND_COMPANY-ES201711012770

PATIENT
  Age: 69 Year
  Sex: Female

DRUGS (4)
  1. ADRIAMYCIN [Suspect]
     Active Substance: DOXORUBICIN HYDROCHLORIDE
     Indication: LEIOMYOSARCOMA METASTATIC
     Dosage: 1 DF, UNKNOWN
     Route: 042
     Dates: start: 20170810, end: 20171221
  2. OLARATUMAB 10MG/ML [Suspect]
     Active Substance: OLARATUMAB
     Indication: LEIOMYOSARCOMA METASTATIC
     Dosage: 1 DF, UNKNOWN
     Route: 042
     Dates: start: 20170810
  3. OLARATUMAB 10MG/ML [Suspect]
     Active Substance: OLARATUMAB
     Dosage: 10 MG/KG, UNKNOWN
     Route: 065
     Dates: end: 20171221
  4. OLARATUMAB 10MG/ML [Suspect]
     Active Substance: OLARATUMAB
     Dosage: 12 MG/KG, UNK
     Route: 065

REACTIONS (2)
  - Febrile neutropenia [Unknown]
  - Neutropenia [Unknown]

NARRATIVE: CASE EVENT DATE: 201708
